FAERS Safety Report 5811645-6 (Version None)
Quarter: 2008Q3

REPORT INFORMATION
  Report Type: 
  Country: None (occurrence: None)
  Receive Date: 20080714
  Receipt Date: 20080704
  Transmission Date: 20090109
  Serious: Yes (Other)
  Sender: FDA-Public Use
  Company Number: 2008AP001663

PATIENT
  Sex: Female

DRUGS (4)
  1. CITALOPRAM HYDROBROMIDE [Suspect]
     Indication: ANXIETY
     Dosage: 20 MG; PO
     Route: 048
     Dates: start: 20051201, end: 20080609
  2. CITALOPRAM HYDROBROMIDE [Suspect]
     Indication: DEPRESSION
     Dosage: 20 MG; PO
     Route: 048
     Dates: start: 20051201, end: 20080609
  3. LEVOTHYROXINE SODIUM [Concomitant]
  4. ZOPICLONE (ZOPICLONE) [Concomitant]

REACTIONS (1)
  - INCREASED TENDENCY TO BRUISE [None]
